FAERS Safety Report 5133853-2 (Version None)
Quarter: 2006Q4

REPORT INFORMATION
  Report Type: 
  Country: None (occurrence: None)
  Receive Date: 20061018
  Receipt Date: 20060926
  Transmission Date: 20070319
  Serious: Yes (Hospitalization)
  Sender: FDA-Public Use
  Company Number: US200609007492

PATIENT
  Sex: Female

DRUGS (1)
  1. CYMBALTA (DULOXETINE HYCROCHLORIDE) CAPSULE [Suspect]
     Dosage: 60 MG

REACTIONS (1)
  - HEPATIC ENZYME INCREASED [None]
